FAERS Safety Report 14497247 (Version 1)
Quarter: 2018Q1

REPORT INFORMATION
  Report Type: Spontaneous
  Country: US (occurrence: US)
  Receive Date: 20180207
  Receipt Date: 20180207
  Transmission Date: 20180509
  Serious: No
  Sender: FDA-Public Use
  Company Number: US-APPCO PHARMA LLC-2041551

PATIENT
  Age: 76 Year
  Sex: Female
  Weight: 71.82 kg

DRUGS (5)
  1. LANTUS [Concomitant]
     Active Substance: INSULIN GLARGINE
     Route: 065
  2. ATORVASTATIN CALCIUM. [Concomitant]
     Active Substance: ATORVASTATIN CALCIUM
     Route: 065
  3. LOSARTAN. [Concomitant]
     Active Substance: LOSARTAN
     Route: 065
  4. GLYCOPYRROLATE. [Suspect]
     Active Substance: GLYCOPYRROLATE
     Indication: DROOLING
     Route: 048
     Dates: start: 20180120, end: 20180121
  5. HUMALOG [Concomitant]
     Active Substance: INSULIN LISPRO
     Route: 065

REACTIONS (5)
  - Vertigo [Recovered/Resolved]
  - Dizziness [Recovered/Resolved]
  - Nausea [Recovered/Resolved]
  - Throat irritation [Recovered/Resolved]
  - Product use in unapproved indication [Unknown]

NARRATIVE: CASE EVENT DATE: 20180120
